FAERS Safety Report 9433759 (Version 2)
Quarter: 2013Q3

REPORT INFORMATION
  Report Type: Spontaneous
  Country: GB (occurrence: None)
  Receive Date: 20130729
  Receipt Date: 20130807
  Transmission Date: 20140515
  Serious: Yes (Hospitalization, Other)
  Sender: FDA-Public Use
  Company Number: AUR-APL-2013-06283

PATIENT
  Age: 71 Year
  Sex: Female

DRUGS (9)
  1. OMEPRAZOLE [Suspect]
     Indication: PRODUCT USED FOR UNKNOWN INDICATION
     Dates: start: 2007
  2. RAMIPRIL [Suspect]
     Indication: PRODUCT USED FOR UNKNOWN INDICATION
  3. ASPIRIN (ACETYLSALICYCLIC ACID) [Concomitant]
  4. BISOPROLOL (BISOPROLOL) [Concomitant]
  5. FLURAZEPAM (FLURAZEMPAM) [Concomitant]
  6. DOSULEPIN (DOSULEPIN) [Concomitant]
  7. DOXAZOSIN (DOXAZOSIN) [Concomitant]
  8. PRAVASTATIN (PRAVASTATIN) [Concomitant]
  9. ROPINIROLE (ROPINIROLE) [Concomitant]

REACTIONS (4)
  - Hypocalcaemia [None]
  - Hyperkalaemia [None]
  - Hypomagnesaemia [None]
  - Hypokalaemia [None]
